FAERS Safety Report 9217165 (Version 1)
Quarter: 2013Q2

REPORT INFORMATION
  Report Type: Spontaneous
  Country: US (occurrence: US)
  Receive Date: 20130408
  Receipt Date: 20130408
  Transmission Date: 20140414
  Serious: No
  Sender: FDA-Public Use
  Company Number: US-PFIZER INC-2013108757

PATIENT
  Age: 62 Year
  Sex: Female
  Weight: 104 kg

DRUGS (7)
  1. LYRICA [Suspect]
     Indication: DIABETIC NEUROPATHY
     Dosage: 50 MG, 3X/DAY
     Dates: start: 201303
  2. LYRICA [Suspect]
     Indication: SCIATICA
  3. LYRICA [Suspect]
     Indication: BACK PAIN
  4. MORPHINE SULFATE [Suspect]
     Indication: SPINAL DISORDER
     Dosage: 30 MG, 3X/DAY
  5. MORPHINE SULFATE [Suspect]
     Indication: SCIATICA
  6. MORPHINE SULFATE [Suspect]
     Indication: BACK PAIN
  7. GLUCOTROL [Concomitant]
     Indication: DIABETES MELLITUS
     Dosage: 5 MG, 1X/DAY

REACTIONS (2)
  - Off label use [Unknown]
  - Drug ineffective [Unknown]
